FAERS Safety Report 7116067-6 (Version None)
Quarter: 2010Q4

REPORT INFORMATION
  Report Type: 
  Country: None (occurrence: None)
  Receive Date: 20101122
  Receipt Date: 20101111
  Transmission Date: 20110411
  Serious: Yes (Hospitalization)
  Sender: FDA-Public Use
  Company Number: BE-BAXTER-2010BH002865

PATIENT
  Age: 18 Month
  Sex: Male
  Weight: 12 kg

DRUGS (10)
  1. ADVATE [Suspect]
     Indication: IMMUNOMODULATORY THERAPY
     Route: 042
  2. ADVATE [Suspect]
     Indication: FACTOR VIII DEFICIENCY
     Route: 042
  3. ADVATE [Suspect]
     Route: 042
     Dates: start: 20090128, end: 20090130
  4. ADVATE [Suspect]
     Route: 042
     Dates: start: 20090128, end: 20090130
  5. ADVATE [Suspect]
     Route: 042
     Dates: start: 20090131, end: 20090201
  6. ADVATE [Suspect]
     Route: 042
     Dates: start: 20090131, end: 20090201
  7. ADVATE [Suspect]
     Route: 042
     Dates: start: 20090202, end: 20090619
  8. ADVATE [Suspect]
     Route: 042
     Dates: start: 20090202, end: 20090619
  9. ADVATE [Suspect]
     Route: 042
     Dates: start: 20090122, end: 20090127
  10. ADVATE [Suspect]
     Route: 042
     Dates: start: 20090122, end: 20090127

REACTIONS (3)
  - CENTRAL VENOUS CATHETERISATION [None]
  - FACTOR VIII INHIBITION [None]
  - MUSCLE HAEMORRHAGE [None]
